FAERS Safety Report 6880122-6 (Version None)
Quarter: 2010Q3

REPORT INFORMATION
  Report Type: 
  Country: None (occurrence: None)
  Receive Date: 20100728
  Receipt Date: 20091124
  Transmission Date: 20110219
  Serious: No
  Sender: FDA-Public Use
  Company Number: US-BRISTOL-MYERS SQUIBB COMPANY-14869465

PATIENT
  Age: 23 Year
  Sex: Female
  Weight: 68 kg

DRUGS (4)
  1. SPRYCEL [Suspect]
     Indication: CHRONIC MYELOID LEUKAEMIA
     Dosage: ALTERNATING 100MG ? TABLET (50MG) EVERY OTHER DAY
     Route: 048
     Dates: start: 20090101
  2. ZOFRAN [Concomitant]
     Indication: NAUSEA
  3. VITAMIN B-12 [Concomitant]
     Route: 060
  4. ASCORBIC ACID [Concomitant]

REACTIONS (4)
  - RASH [None]
  - SWELLING FACE [None]
  - VULVOVAGINAL MYCOTIC INFECTION [None]
  - WEIGHT INCREASED [None]
